FAERS Safety Report 4623225-9 (Version None)
Quarter: 2005Q1

REPORT INFORMATION
  Report Type: 
  Country: None (occurrence: None)
  Receive Date: 20050329
  Receipt Date: 20050321
  Transmission Date: 20050727
  Serious: Yes (Death)
  Sender: FDA-Public Use
  Company Number: MEDI-0003045

PATIENT
  Age: 7 Month
  Sex: Male
  Weight: 5.81 kg

DRUGS (9)
  1. SYNAGIS [Suspect]
     Indication: ANTIVIRAL PROPHYLAXIS
     Dosage: SEE IMAGE, INTRAMUSCULAR
     Route: 030
     Dates: start: 20050208, end: 20050208
  2. SYNAGIS [Suspect]
     Indication: ANTIVIRAL PROPHYLAXIS
     Dosage: SEE IMAGE, INTRAMUSCULAR
     Route: 030
     Dates: start: 20041207, end: 20050308
  3. SYNAGIS [Suspect]
     Indication: ANTIVIRAL PROPHYLAXIS
     Dosage: SEE IMAGE, INTRAMUSCULAR
     Route: 030
     Dates: start: 20041207
  4. SYNAGIS [Suspect]
     Indication: ANTIVIRAL PROPHYLAXIS
     Dosage: SEE IMAGE, INTRAMUSCULAR
     Route: 030
     Dates: start: 20050104
  5. SYNAGIS [Suspect]
  6. SYNAGIS [Suspect]
  7. SYNAGIS [Suspect]
  8. DIGOXIN [Concomitant]
  9. PHENOBARBITAL TAB [Concomitant]

REACTIONS (2)
  - VICTIM OF CHILD ABUSE [None]
  - VICTIM OF HOMICIDE [None]
